FAERS Safety Report 5965080-0 (Version None)
Quarter: 2008Q4

REPORT INFORMATION
  Report Type: 
  Country: None (occurrence: None)
  Receive Date: 20081125
  Receipt Date: 20081111
  Transmission Date: 20090506
  Serious: Yes (Other)
  Sender: FDA-Public Use
  Company Number: CA-GENENTECH-271911

PATIENT
  Sex: Female

DRUGS (1)
  1. AVASTIN [Suspect]
     Indication: COLON CANCER METASTATIC
     Dosage: UNK MG, UNK
     Route: 042
     Dates: start: 20070907

REACTIONS (1)
  - IMMUNODEFICIENCY [None]
